FAERS Safety Report 13456338 (Version 1)
Quarter: 2017Q2

REPORT INFORMATION
  Report Type: Spontaneous
  Country: US (occurrence: US)
  Receive Date: 20170418
  Receipt Date: 20170418
  Transmission Date: 20170830
  Serious: Yes (Other)
  Sender: FDA-Public Use
  Company Number: US-PFIZER INC-2017163884

PATIENT
  Age: 36 Year
  Sex: Male
  Weight: 122.47 kg

DRUGS (5)
  1. INDERAL [Concomitant]
     Active Substance: PROPRANOLOL HYDROCHLORIDE
     Indication: ANXIETY
     Dosage: 20 MG, 3X/DAY
  2. VALIUM [Concomitant]
     Active Substance: DIAZEPAM
     Indication: ANXIETY
     Dosage: 2 MG, 3X/DAY
  3. LYRICA [Suspect]
     Active Substance: PREGABALIN
     Indication: ANXIETY
     Dosage: 375 MG, 1X/DAY
  4. PROZAC [Concomitant]
     Active Substance: FLUOXETINE HYDROCHLORIDE
     Indication: ANXIETY
     Dosage: 10 MG, 1X/DAY
  5. PROZAC [Concomitant]
     Active Substance: FLUOXETINE HYDROCHLORIDE
     Indication: DEPRESSION

REACTIONS (15)
  - Body temperature abnormal [Unknown]
  - Depression [Unknown]
  - Product use in unapproved indication [Unknown]
  - Somnolence [Unknown]
  - Headache [Unknown]
  - Fatigue [Unknown]
  - Cognitive disorder [Unknown]
  - Condition aggravated [Unknown]
  - Visual impairment [Unknown]
  - Anxiety [Unknown]
  - Hyperhidrosis [Unknown]
  - Withdrawal syndrome [Unknown]
  - Heat stroke [Unknown]
  - Memory impairment [Unknown]
  - Emotional disorder [Unknown]
